FAERS Safety Report 6765978-X (Version None)
Quarter: 2010Q2

REPORT INFORMATION
  Report Type: 
  Country: None (occurrence: None)
  Receive Date: 20100611
  Receipt Date: 20100603
  Transmission Date: 20101027
  Serious: Yes (Other)
  Sender: FDA-Public Use
  Company Number: US-ALEXION-A201000650

PATIENT
  Sex: Female

DRUGS (4)
  1. SOLIRIS [Suspect]
     Indication: PAROXYSMAL NOCTURNAL HAEMOGLOBINURIA
     Dosage: UNK
     Route: 042
     Dates: start: 20100513
  2. SOLIRIS [Suspect]
     Dosage: 600 MG, UNK
     Route: 042
     Dates: start: 20100527, end: 20100527
  3. CYCLOSPORINE [Concomitant]
     Dosage: UNK
     Dates: end: 20100501
  4. DIPHENHYDRAMINE [Concomitant]
     Dosage: 25 MG, UNK
     Dates: start: 20100527

REACTIONS (3)
  - MUSCULOSKELETAL PAIN [None]
  - OOPHORECTOMY [None]
  - PYREXIA [None]
